FAERS Safety Report 14598380 (Version 4)
Quarter: 2018Q4

REPORT INFORMATION
  Report Type: Spontaneous
  Country: US (occurrence: US)
  Receive Date: 20180305
  Receipt Date: 20181001
  Transmission Date: 20190204
  Serious: Yes (Hospitalization)
  Sender: FDA-Public Use
  Company Number: US-BIOGEN-2018BI00531407

PATIENT
  Age: 69 Year
  Sex: Female

DRUGS (5)
  1. TECFIDERA [Suspect]
     Active Substance: DIMETHYL FUMARATE
     Dosage: MAINTENANCE DOSE
     Route: 048
  2. LOSARTAN. [Concomitant]
     Active Substance: LOSARTAN
     Indication: HYPERTENSION
     Route: 065
  3. TECFIDERA [Suspect]
     Active Substance: DIMETHYL FUMARATE
     Indication: MULTIPLE SCLEROSIS
     Dosage: STARTING DOSE
     Route: 048
  4. LYRICA [Concomitant]
     Active Substance: PREGABALIN
     Indication: PRODUCT USED FOR UNKNOWN INDICATION
     Route: 065
  5. TECFIDERA [Suspect]
     Active Substance: DIMETHYL FUMARATE
     Route: 065
     Dates: start: 20170526

REACTIONS (15)
  - Infection [Recovered/Resolved]
  - Mastitis [Recovered/Resolved]
  - Bipolar I disorder [Recovered/Resolved]
  - Rash [Recovered/Resolved]
  - Musculoskeletal disorder [Not Recovered/Not Resolved]
  - Disorientation [Unknown]
  - Confusional state [Unknown]
  - Blister [Recovered/Resolved]
  - Muscle spasms [Not Recovered/Not Resolved]
  - Dehydration [Recovered/Resolved]
  - Dementia [Unknown]
  - Gait inability [Recovered/Resolved]
  - Mental disorder [Recovered/Resolved]
  - Myalgia [Not Recovered/Not Resolved]
  - Kidney infection [Recovered/Resolved]

NARRATIVE: CASE EVENT DATE: 20171202
